FAERS Safety Report 9596577 (Version 1)
Quarter: 2013Q4

REPORT INFORMATION
  Report Type: Spontaneous
  Country: GB (occurrence: GB)
  Receive Date: 20131004
  Receipt Date: 20131004
  Transmission Date: 20140711
  Serious: Yes (Other)
  Sender: FDA-Public Use
  Company Number: GB-UCBSA-099066

PATIENT
  Age: 42 Year
  Sex: Female

DRUGS (1)
  1. CIMZIA [Suspect]
     Dates: start: 20130909

REACTIONS (3)
  - Fall [Unknown]
  - Ligament rupture [Unknown]
  - Nausea [Unknown]
